FAERS Safety Report 17006929 (Version 1)
Quarter: 2019Q4

REPORT INFORMATION
  Report Type: Spontaneous
  Country: US (occurrence: US)
  Receive Date: 20191107
  Receipt Date: 20191107
  Transmission Date: 20200122
  Serious: Yes (Other)
  Sender: FDA-Public Use
  Company Number: ALC2019US001275

PATIENT
  Sex: Female

DRUGS (2)
  1. ICAPS AREDS 2 [Suspect]
     Active Substance: MINERALS\VITAMINS
     Indication: PRODUCT USED FOR UNKNOWN INDICATION
     Dosage: UNK
     Route: 065
  2. ICAPS AREDS 2 [Suspect]
     Active Substance: MINERALS\VITAMINS
     Dosage: UNK
     Route: 065

REACTIONS (3)
  - Obstructive airways disorder [Recovering/Resolving]
  - Conjunctival haemorrhage [Recovering/Resolving]
  - Cough [Recovering/Resolving]
